FAERS Safety Report 5723439-0 (Version None)
Quarter: 2008Q2

REPORT INFORMATION
  Report Type: 
  Country: None (occurrence: None)
  Receive Date: 20080430
  Receipt Date: 20080422
  Transmission Date: 20081010
  Serious: Yes (Hospitalization, Other)
  Sender: FDA-Public Use
  Company Number: US-BAYER-200812556NA

PATIENT
  Age: 46 Year
  Sex: Female

DRUGS (8)
  1. AVELOX [Suspect]
     Indication: ACUTE SINUSITIS
     Dosage: TOTAL DAILY DOSE: 400 MG  UNIT DOSE: 400 MG
     Route: 048
     Dates: start: 20080111
  2. ACETAMINOPHEN [Concomitant]
     Indication: PAIN
     Route: 048
  3. PROVENTIL [Concomitant]
     Route: 055
  4. PREMARIN [Concomitant]
     Route: 048
  5. LEVOTHYROXINE SODIUM [Concomitant]
  6. FENTANYL TRANSDERMAL SYSTEM [Concomitant]
     Route: 062
  7. SINGULAIR [Concomitant]
     Dosage: TOTAL DAILY DOSE: 10 MG
     Route: 048
  8. FLOVENT [Concomitant]
     Route: 055

REACTIONS (13)
  - ACUTE MYOCARDIAL INFARCTION [None]
  - ANAPHYLACTIC REACTION [None]
  - ATRIAL FIBRILLATION [None]
  - BURNING SENSATION [None]
  - CHEST PAIN [None]
  - DYSPHAGIA [None]
  - DYSPNOEA [None]
  - PRURITUS GENERALISED [None]
  - RASH [None]
  - SPEECH DISORDER [None]
  - SWOLLEN TONGUE [None]
  - TACHYCARDIA [None]
  - URTICARIA [None]
